FAERS Safety Report 5202549-0 (Version None)
Quarter: 2006Q4

REPORT INFORMATION
  Report Type: 
  Country: None (occurrence: None)
  Receive Date: 20061018
  Receipt Date: 20040913
  Transmission Date: 20070319
  Serious: Yes (Hospitalization)
  Sender: FDA-Public Use
  Company Number: PHEH2004US09930

PATIENT
  Age: 76 Year
  Sex: Female

DRUGS (1)
  1. ZOMETA [Suspect]
     Dosage: UNK, UNK, UNK

REACTIONS (3)
  - BLOOD CREATININE INCREASED [None]
  - ELECTROLYTE IMBALANCE [None]
  - RENAL FAILURE [None]
